FAERS Safety Report 7008446-2 (Version None)
Quarter: 2010Q3

REPORT INFORMATION
  Report Type: 
  Country: None (occurrence: None)
  Receive Date: 20100420
  Receipt Date: 20100210
  Transmission Date: 20110219
  Serious: No
  Sender: FDA-Public Use
  Company Number: LMI-2010-00059(0)

PATIENT
  Age: 45 Year
  Sex: Female
  Weight: 81.6475 kg

DRUGS (1)
  1. ABLAVAR [Suspect]
     Indication: NUCLEAR MAGNETIC RESONANCE IMAGING
     Dosage: 20 ML NORMAL SALINE FLUSH GIVEN AFTER ADMINISTRATION (10 ML)
     Dates: start: 20100209, end: 20100209

REACTIONS (1)
  - ANAL PRURITUS [None]
